FAERS Safety Report 5387727-2 (Version None)
Quarter: 2007Q3

REPORT INFORMATION
  Report Type: 
  Country: None (occurrence: None)
  Receive Date: 20070716
  Receipt Date: 20070712
  Transmission Date: 20080115
  Serious: Yes (Other)
  Sender: FDA-Public Use
  Company Number: A0664060A

PATIENT
  Age: 14 Month
  Sex: Male
  Weight: 20 kg

DRUGS (4)
  1. FLIXOTIDE [Suspect]
     Indication: BRONCHITIS
     Route: 065
     Dates: start: 20020101, end: 20020301
  2. BRONDILAT [Concomitant]
     Dates: start: 20020101, end: 20020301
  3. BEROTEC [Concomitant]
     Dates: start: 20020101, end: 20020301
  4. ATROVENT [Concomitant]

REACTIONS (1)
  - ASTHMATIC CRISIS [None]
